FAERS Safety Report 18119863 (Version 3)
Quarter: 2020Q3

REPORT INFORMATION
  Report Type: Spontaneous
  Country: FR (occurrence: FR)
  Receive Date: 20200806
  Receipt Date: 20200921
  Transmission Date: 20201103
  Serious: Yes (Other)
  Sender: FDA-Public Use
  Company Number: FR-JNJFOC-20200803799

PATIENT
  Age: 32 Year
  Sex: Male

DRUGS (5)
  1. SIMPONI [Suspect]
     Active Substance: GOLIMUMAB
     Indication: COLITIS ULCERATIVE
     Dosage: FIRST WEEK
     Route: 058
     Dates: start: 20200722
  2. SIMPONI [Suspect]
     Active Substance: GOLIMUMAB
     Dosage: 14 DAYS AFTER
     Route: 058
     Dates: start: 20200722
  3. SIMPONI [Suspect]
     Active Substance: GOLIMUMAB
     Dosage: SECOND WEEK
     Route: 058
     Dates: start: 20200722
  4. SIMPONI [Suspect]
     Active Substance: GOLIMUMAB
     Dosage: 14 DAYS AFTER
     Route: 058
     Dates: start: 20200722
  5. ROWASA [Concomitant]
     Active Substance: MESALAMINE
     Route: 065

REACTIONS (5)
  - Drug delivery system issue [Unknown]
  - Haemorrhage [Unknown]
  - Respiratory disorder [Recovering/Resolving]
  - Inappropriate schedule of product administration [Unknown]
  - Off label use [Unknown]

NARRATIVE: CASE EVENT DATE: 20200729
